FAERS Safety Report 6264182-1 (Version None)
Quarter: 2009Q3

REPORT INFORMATION
  Report Type: 
  Country: None (occurrence: None)
  Receive Date: 20090710
  Receipt Date: 20090702
  Transmission Date: 20100115
  Serious: Yes (Hospitalization)
  Sender: FDA-Public Use
  Company Number: FR-TEVA-198525USA

PATIENT
  Sex: Female

DRUGS (6)
  1. BISELECT [Suspect]
     Route: 048
     Dates: start: 20090226, end: 20090301
  2. HEPARIN SODIUM [Suspect]
     Route: 042
     Dates: start: 20090212, end: 20090227
  3. TERBUTALINE SULFATE [Suspect]
     Route: 055
     Dates: start: 20090225, end: 20090302
  4. POTASSIUM CHLORIDE [Suspect]
     Route: 048
     Dates: start: 20090225, end: 20090301
  5. FUROSEMIDE [Suspect]
     Route: 048
     Dates: start: 20090226, end: 20090301
  6. FLUINDIONE [Suspect]
     Dates: start: 20090226, end: 20090227

REACTIONS (1)
  - HEPARIN-INDUCED THROMBOCYTOPENIA [None]
